FAERS Safety Report 11659566 (Version 1)
Quarter: 2015Q4

REPORT INFORMATION
  Report Type: Spontaneous
  Country: GB (occurrence: GB)
  Receive Date: 20151026
  Receipt Date: 20151026
  Transmission Date: 20160304
  Serious: Yes (Other)
  Sender: FDA-Public Use
  Company Number: GB-WATSON-2015-20288

PATIENT
  Age: 47 Year
  Sex: Female
  Weight: 64.86 kg

DRUGS (2)
  1. FLUOXETINE [Suspect]
     Active Substance: FLUOXETINE HYDROCHLORIDE
     Dosage: 20 MG, DAILY
     Route: 048
     Dates: start: 201401
  2. FLUOXETINE [Suspect]
     Active Substance: FLUOXETINE HYDROCHLORIDE
     Indication: DEPRESSION
     Dosage: 20 MG, QOD. (HAS BEEN TAKING SAME BRAND SINCE JAN 2014)
     Route: 048
     Dates: start: 20150901

REACTIONS (11)
  - Bruxism [Not Recovered/Not Resolved]
  - Feeling abnormal [Not Recovered/Not Resolved]
  - Headache [Not Recovered/Not Resolved]
  - Tearfulness [Not Recovered/Not Resolved]
  - Product lot number issue [Unknown]
  - Hangover [Not Recovered/Not Resolved]
  - Depressed mood [Not Recovered/Not Resolved]
  - Trismus [Not Recovered/Not Resolved]
  - Product physical issue [Unknown]
  - Fatigue [Not Recovered/Not Resolved]
  - Oral discomfort [Not Recovered/Not Resolved]

NARRATIVE: CASE EVENT DATE: 201509
